FAERS Safety Report 21343531 (Version 1)
Quarter: 2022Q3

REPORT INFORMATION
  Report Type: Spontaneous
  Country: US (occurrence: US)
  Receive Date: 20220916
  Receipt Date: 20220916
  Transmission Date: 20221026
  Serious: Yes (Hospitalization)
  Sender: FDA-Public Use
  Company Number: US-STRIDES ARCOLAB LIMITED-2022SP002452

PATIENT
  Sex: Female

DRUGS (3)
  1. ACETAZOLAMIDE [Suspect]
     Active Substance: ACETAZOLAMIDE
     Indication: Intracranial pressure increased
     Dosage: UNK
     Route: 065
  2. ACETAZOLAMIDE [Suspect]
     Active Substance: ACETAZOLAMIDE
     Dosage: UNK (RE-STARTED)
     Route: 065
  3. FUROSEMIDE [Suspect]
     Active Substance: FUROSEMIDE
     Indication: Intracranial pressure increased
     Dosage: UNK
     Route: 065

REACTIONS (1)
  - Drug ineffective for unapproved indication [Unknown]
